FAERS Safety Report 9803075 (Version 2)
Quarter: 2014Q1

REPORT INFORMATION
  Report Type: Spontaneous
  Country: US (occurrence: US)
  Receive Date: 20140108
  Receipt Date: 20140116
  Transmission Date: 20141002
  Serious: Yes (Other)
  Sender: FDA-Public Use
  Company Number: US-BAYER-2014-000451

PATIENT
  Age: 19 Year
  Sex: Female
  Weight: 68.03 kg

DRUGS (1)
  1. MIDOL MENSTRUAL COMPLETE FORMULA [Suspect]
     Indication: DYSMENORRHOEA
     Dosage: 2 DF, ONCE
     Route: 048
     Dates: start: 201310, end: 201310

REACTIONS (4)
  - Hallucination [Recovered/Resolved]
  - Dyspnoea [Recovered/Resolved]
  - Syncope [Recovered/Resolved]
  - Palpitations [Recovered/Resolved]
